FAERS Safety Report 10020635 (Version 3)
Quarter: 2014Q2

REPORT INFORMATION
  Report Type: Report from Study
  Country: PE (occurrence: PE)
  Receive Date: 20140319
  Receipt Date: 20140414
  Transmission Date: 20141212
  Serious: Yes (Death, Hospitalization, Other)
  Sender: FDA-Public Use
  Company Number: PE-BRISTOL-MYERS SQUIBB COMPANY-20386728

PATIENT
  Age: 87 Year
  Sex: 0

DRUGS (2)
  1. CETUXIMAB [Suspect]
     Indication: SQUAMOUS CELL CARCINOMA OF HEAD AND NECK
     Dosage: 250 MG/M2?ON 07 MAY 2007, THE SUBJECT RECEIVED THE MOST RECENT INFUSION OF CETUXIMAB
     Route: 042
     Dates: start: 20070416
  2. CISPLATIN [Suspect]
     Indication: SQUAMOUS CELL CARCINOMA OF HEAD AND NECK
     Dosage: ON 14 MAY 2007, THE SUBJECT RECEIVED THE MOST RECENT INFUSION OF CISPLATIN
     Route: 042
     Dates: start: 20070423

REACTIONS (1)
  - Pneumonia [Fatal]
